FAERS Safety Report 8816583 (Version 1)
Quarter: 2012Q4

REPORT INFORMATION
  Report Type: 
  Country: US (occurrence: None)
  Receive Date: 20121001
  Receipt Date: 20121001
  Transmission Date: 20130627
  Serious: Yes (Hospitalization)
  Sender: FDA-Public Use
  Company Number: None

PATIENT
  Sex: Male
  Weight: 231.33 kg

DRUGS (6)
  1. CYTARABINE [Suspect]
  2. DAUNORUBICIN [Suspect]
  3. METHOTREXATE [Suspect]
  4. METHYLPREDNISOLONE [Suspect]
  5. PEG-L ASPARAGINASE [Suspect]
  6. VINCRISTINE SULFATE [Suspect]

REACTIONS (4)
  - Atrial flutter [None]
  - Post procedural complication [None]
  - Pneumothorax [None]
  - Renal failure acute [None]
